FAERS Safety Report 7152007-1 (Version None)
Quarter: 2010Q4

REPORT INFORMATION
  Report Type: 
  Country: None (occurrence: None)
  Receive Date: 20101211
  Receipt Date: 20101206
  Transmission Date: 20110411
  Serious: Yes (Other)
  Sender: FDA-Public Use
  Company Number: PL-PFIZER INC-2010164665

PATIENT
  Sex: Female
  Weight: 68 kg

DRUGS (2)
  1. ETANERCEPT [Suspect]
     Dosage: 50 MG, WEEKLY
     Route: 058
     Dates: start: 20080616, end: 20101022
  2. METHYLPREDNISOLONE [Suspect]
     Dosage: 4 MG, DAILY
     Route: 048
     Dates: start: 20020101

REACTIONS (1)
  - THYROID CANCER [None]
